FAERS Safety Report 18257860 (Version 4)
Quarter: 2020Q4

REPORT INFORMATION
  Report Type: Spontaneous
  Country: US (occurrence: US)
  Receive Date: 20200911
  Receipt Date: 20201130
  Transmission Date: 20210113
  Serious: No
  Sender: FDA-Public Use
  Company Number: US-PFIZER INC-2020349063

PATIENT
  Age: 62 Year
  Sex: Female

DRUGS (1)
  1. PROPOFOL. [Suspect]
     Active Substance: PROPOFOL
     Dosage: UNK (20ML W/O SULF)

REACTIONS (5)
  - Exposure via skin contact [Unknown]
  - Hypoaesthesia [Unknown]
  - Product packaging issue [Unknown]
  - Accidental exposure to product [Unknown]
  - Pruritus [Unknown]

NARRATIVE: CASE EVENT DATE: 20200903
